FAERS Safety Report 8197991-2 (Version None)
Quarter: 2012Q1

REPORT INFORMATION
  Report Type: 
  Country: None (occurrence: None)
  Receive Date: 20120309
  Receipt Date: 20120106
  Transmission Date: 20120608
  Serious: No
  Sender: FDA-Public Use
  Company Number: US-AMGEN-USASP2012000942

PATIENT
  Age: 65 Year
  Sex: Male

DRUGS (3)
  1. PACLITAXEL +PHARMA [Concomitant]
  2. XGEVA [Suspect]
     Indication: LUNG CANCER METASTATIC
     Dosage: 120 MG, Q4WK
     Dates: start: 20111201
  3. CARBOPLATIN [Concomitant]

REACTIONS (2)
  - ASTHENIA [None]
  - FATIGUE [None]
